FAERS Safety Report 15661520 (Version 1)
Quarter: 2018Q4

REPORT INFORMATION
  Report Type: Report from Study
  Country: US (occurrence: US)
  Receive Date: 20181127
  Receipt Date: 20181127
  Transmission Date: 20190205
  Serious: Yes (Hospitalization, Other)
  Sender: FDA-Public Use
  Company Number: US-THERATECHNOLOGIES, INC.-TH-2016-00181

PATIENT

DRUGS (9)
  1. AMLODIPINE [Concomitant]
     Active Substance: AMLODIPINE BESYLATE
     Indication: HYPERTENSION
     Dosage: 5 MG MILLIGRAM(S), DAILY DOSE
     Route: 048
     Dates: start: 2014
  2. DOCUSATE [Concomitant]
     Active Substance: DOCUSATE
     Indication: CONSTIPATION
     Dosage: 100 MG MILLIGRAM(S), PRN
     Route: 048
  3. EGRIFTA [Suspect]
     Active Substance: TESAMORELIN
     Indication: NON-ALCOHOLIC STEATOHEPATITIS
     Dosage: 2 MG MILLIGRAM(S), DAILY DOSE
     Route: 058
     Dates: start: 20160318
  4. ATORVASTATIN [Concomitant]
     Active Substance: ATORVASTATIN
     Indication: DYSLIPIDAEMIA
     Dosage: 40 MG MILLIGRAM(S), DAILY DOSE
     Route: 048
     Dates: start: 2014
  5. BUPROPION. [Concomitant]
     Active Substance: BUPROPION
     Indication: BIPOLAR DISORDER
     Dosage: 300 MG MILLIGRAM(S), DAILY DOSE
     Route: 048
  6. CLARITIN [Concomitant]
     Active Substance: LORATADINE
     Indication: SEASONAL ALLERGY
     Dosage: UNK UNK, PRN
     Route: 048
     Dates: start: 2016
  7. OTHER THERAPEUTIC PRODUCTS [Concomitant]
     Active Substance: UNSPECIFIED INGREDIENT
     Indication: HIV INFECTION
     Dosage: 500/600/300 MG, DAILY DOSE
     Dates: start: 2014
  8. ASPIRIN. [Concomitant]
     Active Substance: ASPIRIN
     Indication: VASCULAR PSEUDOANEURYSM
     Dosage: 81 MG MILLIGRAM(S), DAILY DOSE
     Route: 048
     Dates: start: 2015
  9. CLONIDINE. [Concomitant]
     Active Substance: CLONIDINE
     Dosage: 0.2 MG MILLIGRAM(S), QHS
     Route: 048

REACTIONS (3)
  - Dysarthria [Recovered/Resolved]
  - Hemiplegia [Recovered/Resolved]
  - Paraesthesia [Recovered/Resolved]

NARRATIVE: CASE EVENT DATE: 20161001
